FAERS Safety Report 24954142 (Version 1)
Quarter: 2025Q1

REPORT INFORMATION
  Report Type: Spontaneous
  Country: US (occurrence: US)
  Receive Date: 20250211
  Receipt Date: 20250211
  Transmission Date: 20250409
  Serious: Yes (Hospitalization)
  Sender: LUPIN
  Company Number: US-LUPIN PHARMACEUTICALS INC.-2025-00786

PATIENT
  Age: 30 Year
  Sex: Male

DRUGS (1)
  1. BUPROPION [Suspect]
     Active Substance: BUPROPION
     Indication: Schizoaffective disorder bipolar type
     Dosage: 300 MILLIGRAM, QD, OVERUSE OF BUPROPION BY SNORTING FOUR 150-MG BUPROPION PILLS PER DAY, WITH A TOTA
     Route: 065

REACTIONS (5)
  - Mania [Recovered/Resolved]
  - Intentional product misuse [Unknown]
  - Intentional overdose [Unknown]
  - Incorrect route of product administration [Unknown]
  - Off label use [Unknown]

NARRATIVE: CASE EVENT DATE: 20211201
